FAERS Safety Report 5836494-4 (Version None)
Quarter: 2008Q3

REPORT INFORMATION
  Report Type: 
  Country: None (occurrence: None)
  Receive Date: 20080806
  Receipt Date: 20080806
  Transmission Date: 20090109
  Serious: Yes (Hospitalization)
  Sender: FDA-Public Use
  Company Number: None

PATIENT
  Age: 86 Year
  Sex: Male
  Weight: 108.2 kg

DRUGS (2)
  1. LINEZOLID [Suspect]
     Indication: INFECTION
     Dosage: 600 MG BID PO
     Route: 048
     Dates: start: 20080530, end: 20080616
  2. HEPARIN SODIUM 25,000 UNITS IN SODIUM CHLORIDE 0.45% [Suspect]
     Indication: ANTICOAGULANT THERAPY
     Dates: start: 20080606, end: 20080613

REACTIONS (1)
  - THROMBOCYTOPENIA [None]
